FAERS Safety Report 19416628 (Version 5)
Quarter: 2023Q2

REPORT INFORMATION
  Report Type: Spontaneous
  Country: US (occurrence: US)
  Receive Date: 20210614
  Receipt Date: 20230405
  Transmission Date: 20230721
  Serious: Yes (Death)
  Sender: FDA-Public Use
  Company Number: US-NOVARTISTESTPH-NVSC2021US133316

PATIENT
  Sex: Male
  Weight: 18.3 kg

DRUGS (3)
  1. VOTRIENT [Suspect]
     Active Substance: PAZOPANIB HYDROCHLORIDE
     Indication: Bone cancer
     Dosage: 400 MG, 6 DAYS A WEEK
     Route: 048
     Dates: start: 20210310, end: 20210606
  2. VOTRIENT [Suspect]
     Active Substance: PAZOPANIB HYDROCHLORIDE
     Indication: Cartilage neoplasm
     Dosage: 400 MG, 6 DAYS A WEEK
     Route: 048
     Dates: start: 20210315
  3. VOTRIENT [Suspect]
     Active Substance: PAZOPANIB HYDROCHLORIDE
     Dosage: 400 MG, 6 DAYS A WEEK
     Route: 048
     Dates: start: 20210810

REACTIONS (3)
  - Malignant neoplasm progression [Fatal]
  - Ewing^s sarcoma [Fatal]
  - Drug ineffective [Unknown]
